FAERS Safety Report 5530809-2 (Version None)
Quarter: 2007Q4

REPORT INFORMATION
  Report Type: 
  Country: None (occurrence: None)
  Receive Date: 20071130
  Receipt Date: 20071120
  Transmission Date: 20080405
  Serious: Yes (Other)
  Sender: FDA-Public Use
  Company Number: US-PURDUE-USA_2007_0028014

PATIENT
  Sex: Female
  Weight: 102 kg

DRUGS (1)
  1. OXYCONTIN [Suspect]
     Indication: BACK PAIN
     Dosage: 140 MG, TID
     Dates: start: 19950101, end: 20010101

REACTIONS (5)
  - CARDIAC DISORDER [None]
  - DRUG ABUSE [None]
  - INSOMNIA [None]
  - MENTAL IMPAIRMENT [None]
  - WEIGHT DECREASED [None]
